FAERS Safety Report 18220311 (Version 1)
Quarter: 2020Q3

REPORT INFORMATION
  Report Type: Other
  Country: US (occurrence: US)
  Receive Date: 20200902
  Receipt Date: 20200902
  Transmission Date: 20201103
  Serious: Yes (Other)
  Sender: FDA-Public Use
  Company Number: US-INTERCEPT-PM2020000451

PATIENT
  Age: 23 Year
  Sex: Male
  Weight: 59.6 kg

DRUGS (12)
  1. PENTASA [Concomitant]
     Active Substance: MESALAMINE
     Indication: CROHN^S DISEASE
  2. IMURAN [Concomitant]
     Active Substance: AZATHIOPRINE
     Indication: CROHN^S DISEASE
     Dosage: 50 MG, QD
     Route: 048
     Dates: start: 20200316
  3. XOPENEX HFA [Concomitant]
     Active Substance: LEVALBUTEROL TARTRATE
     Indication: WHEEZING
     Dosage: INHALE 2 PUFFS EVERY 4 (FOUR)  HOURS AS NEEDED
  4. XOPENEX HFA [Concomitant]
     Active Substance: LEVALBUTEROL TARTRATE
     Indication: COUGH
  5. URSODIOL. [Concomitant]
     Active Substance: URSODIOL
     Indication: PRIMARY BILIARY CHOLANGITIS
     Dosage: 500 MG, BID (16.4 MG PER KG PER DAY)
     Dates: start: 2000
  6. IRON [Concomitant]
     Active Substance: IRON
     Dosage: 1000 ??G, QD
     Route: 048
  7. LIALDA [Concomitant]
     Active Substance: MESALAMINE
     Indication: CROHN^S DISEASE
     Dosage: 4.8 G, QD
     Route: 048
  8. MULTIVITAMIN                       /00097801/ [Concomitant]
     Active Substance: VITAMINS
     Route: 048
  9. URSODIOL. [Concomitant]
     Active Substance: URSODIOL
     Indication: CHOLANGITIS SCLEROSING
  10. VITRON?C [Suspect]
     Active Substance: ASCORBIC ACID\IRON
     Dosage: 125 MG, BID
  11. OCALIVA [Suspect]
     Active Substance: OBETICHOLIC ACID
     Indication: PRODUCT USE IN UNAPPROVED INDICATION
     Dosage: 5 MG, QD
     Route: 048
     Dates: start: 202001
  12. XOPENEX HFA [Concomitant]
     Active Substance: LEVALBUTEROL TARTRATE
     Indication: DYSPNOEA

REACTIONS (13)
  - Aspartate aminotransferase increased [Unknown]
  - Therapy interrupted [Recovered/Resolved]
  - Biliary sphincterotomy [Unknown]
  - Pruritus [Not Recovered/Not Resolved]
  - Cholelithotomy [Unknown]
  - Bilirubin conjugated abnormal [Unknown]
  - Haemosiderosis [Unknown]
  - Blood bilirubin abnormal [Unknown]
  - Blood alkaline phosphatase increased [Unknown]
  - Insurance issue [Recovered/Resolved]
  - Bile duct stone [Unknown]
  - Protein total abnormal [Unknown]
  - Off label use [Unknown]

NARRATIVE: CASE EVENT DATE: 2020
